FAERS Safety Report 22101451 (Version 1)
Quarter: 2023Q1

REPORT INFORMATION
  Report Type: Spontaneous
  Country: US (occurrence: US)
  Receive Date: 20230316
  Receipt Date: 20230316
  Transmission Date: 20230417
  Serious: Yes (Death, Hospitalization)
  Sender: FDA-Public Use
  Company Number: US-TEVA-2023-US-2865002

PATIENT
  Age: 20 Month
  Sex: Male

DRUGS (4)
  1. NALOXONE [Suspect]
     Active Substance: NALOXONE
     Indication: Toxicity to various agents
     Route: 065
  2. FENTANYL [Suspect]
     Active Substance: FENTANYL
     Indication: Product used for unknown indication
     Route: 065
  3. DEXMEDETOMIDINE [Suspect]
     Active Substance: DEXMEDETOMIDINE
     Indication: Toxicity to various agents
     Route: 065
  4. NALMEFENE [Suspect]
     Active Substance: NALMEFENE
     Indication: Toxicity to various agents
     Route: 065

REACTIONS (9)
  - Toxicity to various agents [Fatal]
  - Hypertension [Fatal]
  - Tachycardia [Fatal]
  - Bradypnoea [Fatal]
  - Respiratory depression [Fatal]
  - Coma [Fatal]
  - Depressed level of consciousness [Fatal]
  - Cardiac arrest [Fatal]
  - Drug ineffective [Fatal]
